FAERS Safety Report 9212936 (Version 3)
Quarter: 2013Q2

REPORT INFORMATION
  Report Type: Spontaneous
  Country: DE (occurrence: DE)
  Receive Date: 20130405
  Receipt Date: 20130628
  Transmission Date: 20140414
  Serious: Yes (Hospitalization, Other)
  Sender: FDA-Public Use
  Company Number: DE-JNJFOC-20130317965

PATIENT
  Age: 48 Year
  Sex: Female
  Weight: 82 kg

DRUGS (6)
  1. REMICADE [Suspect]
     Indication: COLITIS ULCERATIVE
     Route: 042
     Dates: start: 20130301
  2. REMICADE [Suspect]
     Indication: COLITIS ULCERATIVE
     Dosage: 2ND INFUSION
     Route: 042
     Dates: start: 20130315
  3. REMICADE [Suspect]
     Indication: COLITIS ULCERATIVE
     Route: 042
     Dates: start: 20130312
  4. PANTOZOL [Concomitant]
     Indication: GASTRIC DISORDER
     Route: 065
     Dates: start: 201211
  5. TORASEMID [Concomitant]
     Indication: OEDEMA
     Route: 065
     Dates: start: 20130315
  6. PREDNISOLON [Concomitant]
     Indication: INFLAMMATORY BOWEL DISEASE
     Route: 065
     Dates: start: 20130219

REACTIONS (4)
  - Acute myocardial infarction [Recovered/Resolved]
  - Left ventricular dysfunction [Unknown]
  - Coronary artery disease [Unknown]
  - Vessel puncture site haematoma [Unknown]
